FAERS Safety Report 14569573 (Version 1)
Quarter: 2018Q1

REPORT INFORMATION
  Report Type: Spontaneous
  Country: SK (occurrence: SK)
  Receive Date: 20180224
  Receipt Date: 20180224
  Transmission Date: 20180509
  Serious: Yes (Death, Hospitalization)
  Sender: FDA-Public Use
  Company Number: SK-ROCHE-2077348

PATIENT
  Sex: Female

DRUGS (1)
  1. XOLAIR [Suspect]
     Active Substance: OMALIZUMAB
     Indication: PRODUCT USED FOR UNKNOWN INDICATION
     Route: 065

REACTIONS (10)
  - Subileus [Unknown]
  - Hypotension [Fatal]
  - Megacolon [Fatal]
  - Dehydration [Fatal]
  - Intestinal haemorrhage [Fatal]
  - Acute kidney injury [Fatal]
  - Septic shock [Fatal]
  - Coagulopathy [Fatal]
  - Haematoma [Fatal]
  - Shock haemorrhagic [Fatal]

NARRATIVE: CASE EVENT DATE: 20170606
